FAERS Safety Report 7538750-0 (Version None)
Quarter: 2011Q2

REPORT INFORMATION
  Report Type: 
  Country: None (occurrence: None)
  Receive Date: 20110610
  Receipt Date: 20110606
  Transmission Date: 20111010
  Serious: No
  Sender: FDA-Public Use
  Company Number: US-PFIZER INC-2011122780

PATIENT
  Sex: Female
  Weight: 56.689 kg

DRUGS (3)
  1. REFRESH [Concomitant]
     Dosage: UNK
  2. XALATAN [Suspect]
     Indication: INTRAOCULAR PRESSURE INCREASED
     Dosage: ONE DROP IN EACH EYE, 1X/DAY
     Route: 047
     Dates: start: 20110401
  3. SYSTANE [Concomitant]
     Dosage: UNK

REACTIONS (2)
  - RHINORRHOEA [None]
  - VISION BLURRED [None]
